FAERS Safety Report 8846163 (Version 2)
Quarter: 2013Q2

REPORT INFORMATION
  Report Type: Report from Study
  Country: JP (occurrence: JP)
  Receive Date: 20121017
  Receipt Date: 20130624
  Transmission Date: 20140414
  Serious: Yes (Other)
  Sender: FDA-Public Use
  Company Number: PHHY2012JP090539

PATIENT
  Age: 45 Year
  Sex: Female

DRUGS (3)
  1. FTY 720 [Suspect]
     Indication: RELAPSING-REMITTING MULTIPLE SCLEROSIS
     Dosage: 0.5 MG, QD
     Route: 048
     Dates: start: 20120322, end: 20120619
  2. SYMMETREL [Concomitant]
     Dosage: 100 MG, UNK
     Route: 048
  3. LIORESAL ^CIBA-GEIGY^ [Concomitant]
     Dosage: 30 MG, UNK
     Route: 048

REACTIONS (1)
  - Herpes zoster [Recovered/Resolved]
